FAERS Safety Report 9666270 (Version 2)
Quarter: 2013Q4

REPORT INFORMATION
  Report Type: Report from Study
  Country: IT (occurrence: IT)
  Receive Date: 20131104
  Receipt Date: 20131113
  Transmission Date: 20140711
  Serious: Yes (Hospitalization, Other)
  Sender: FDA-Public Use
  Company Number: IT-PFIZER INC-2013311311

PATIENT
  Age: 26 Year
  Sex: Female
  Weight: 63 kg

DRUGS (1)
  1. CRIZOTINIB [Suspect]
     Indication: LUNG CANCER METASTATIC
     Dosage: 200 MG, 1X/DAY, FREQUENCY 28 DAYS
     Route: 048
     Dates: start: 20130829, end: 20130924

REACTIONS (1)
  - Pancreatitis [Not Recovered/Not Resolved]
